FAERS Safety Report 4945787-4 (Version None)
Quarter: 2006Q1

REPORT INFORMATION
  Report Type: 
  Country: None (occurrence: None)
  Receive Date: 20060117
  Receipt Date: 20050204
  Transmission Date: 20060701
  Serious: Yes (Other)
  Sender: FDA-Public Use
  Company Number: A03200500377

PATIENT

DRUGS (2)
  1. PLAVIX [Suspect]
     Dosage: 75 MG QD - ORAL
     Route: 048
  2. ASPIRIN [Suspect]
     Dosage: 325 MG QD - ORAL
     Route: 048

REACTIONS (1)
  - TRANSIENT ISCHAEMIC ATTACK [None]
